FAERS Safety Report 19786329 (Version 2)
Quarter: 2021Q4

REPORT INFORMATION
  Report Type: Report from Study
  Country: US (occurrence: US)
  Receive Date: 20210903
  Receipt Date: 20211018
  Transmission Date: 20220303
  Serious: Yes (Death, Hospitalization)
  Sender: FDA-Public Use
  Company Number: US-BAYER-2021-195623

PATIENT
  Age: 66 Year
  Sex: Female
  Weight: 87.98 kg

DRUGS (6)
  1. ADEMPAS [Suspect]
     Active Substance: RIOCIGUAT
     Indication: Pulmonary arterial hypertension
     Dosage: UNK
     Route: 048
     Dates: start: 20210311
  2. ADEMPAS [Suspect]
     Active Substance: RIOCIGUAT
     Indication: Pulmonary arterial hypertension
     Dosage: 1.5 MG, TID
     Route: 048
  3. OPSUMIT [Concomitant]
     Active Substance: MACITENTAN
  4. UPTRAVI [Concomitant]
     Active Substance: SELEXIPAG
  5. ESBRIET [Concomitant]
     Active Substance: PIRFENIDONE
  6. ELIQUIS [Concomitant]
     Active Substance: APIXABAN

REACTIONS (3)
  - Death [Fatal]
  - Pneumonia [None]
  - Pulmonary oedema [None]

NARRATIVE: CASE EVENT DATE: 20210726
